FAERS Safety Report 12313863 (Version 1)
Quarter: 2016Q2

REPORT INFORMATION
  Report Type: Spontaneous
  Country: US (occurrence: None)
  Receive Date: 20160427
  Receipt Date: 20160427
  Transmission Date: 20160815
  Serious: Yes (Hospitalization)
  Sender: FDA-Public Use
  Company Number: None

PATIENT
  Age: 49 Year
  Sex: Female

DRUGS (8)
  1. ORKAMBI [Suspect]
     Active Substance: IVACAFTOR\LUMACAFTOR
     Indication: CYSTIC FIBROSIS
     Dosage: 400-250MG BID PO
     Route: 048
     Dates: start: 20150810
  2. BROVANA [Concomitant]
     Active Substance: ARFORMOTEROL TARTRATE
  3. IPRATROPIUM [Concomitant]
     Active Substance: IPRATROPIUM
  4. SDOL CHL [Concomitant]
  5. PREDNISONE. [Concomitant]
     Active Substance: PREDNISONE
  6. LEVOFLOXACIN. [Concomitant]
     Active Substance: LEVOFLOXACIN
  7. VENTOLIN [Concomitant]
     Active Substance: ALBUTEROL SULFATE
  8. MOMETASONE NASAL SPRAY, 50 MCG [Concomitant]
     Active Substance: MOMETASONE

REACTIONS (1)
  - Hospitalisation [None]
